FAERS Safety Report 6214010-5 (Version None)
Quarter: 2009Q2

REPORT INFORMATION
  Report Type: 
  Country: None (occurrence: None)
  Receive Date: 20090601
  Receipt Date: 20090601
  Transmission Date: 20091009
  Serious: No
  Sender: FDA-Public Use
  Company Number: None

PATIENT
  Age: 57 Year
  Sex: Male
  Weight: 104.3273 kg

DRUGS (1)
  1. CLARITHROMYCIN [Suspect]
     Dosage: 500 MG Q12H PO
     Route: 048

REACTIONS (1)
  - RASH [None]
